FAERS Safety Report 11595099 (Version 2)
Quarter: 2015Q4

REPORT INFORMATION
  Report Type: Report from Study
  Country: US (occurrence: US)
  Receive Date: 20151006
  Receipt Date: 20151226
  Transmission Date: 20160304
  Serious: No
  Sender: FDA-Public Use
  Company Number: PHEH2015US019157

PATIENT
  Age: 54 Year
  Sex: Male

DRUGS (2)
  1. COSENTYX [Suspect]
     Active Substance: SECUKINUMAB
     Dosage: 300 MG, QMO
     Route: 058
     Dates: start: 20150710
  2. COSENTYX [Suspect]
     Active Substance: SECUKINUMAB
     Indication: PRODUCT USED FOR UNKNOWN INDICATION
     Dosage: 300 MG, QMO
     Route: 065
     Dates: start: 20150710

REACTIONS (6)
  - Eye swelling [Recovering/Resolving]
  - Vision blurred [Unknown]
  - Hordeolum [Unknown]
  - Eye pruritus [Unknown]
  - Weight decreased [Unknown]
  - Eye irritation [Unknown]

NARRATIVE: CASE EVENT DATE: 20150806
